FAERS Safety Report 15245817 (Version 1)
Quarter: 2018Q3

REPORT INFORMATION
  Report Type: Report from Study
  Country: GB (occurrence: GB)
  Receive Date: 20180806
  Receipt Date: 20180806
  Transmission Date: 20181010
  Serious: Yes (Hospitalization)
  Sender: FDA-Public Use
  Company Number: PHHY2018GB060651

PATIENT
  Sex: Male
  Weight: 98.6 kg

DRUGS (1)
  1. ENTRESTO [Suspect]
     Active Substance: SACUBITRIL\VALSARTAN
     Indication: CARDIAC FAILURE CHRONIC
     Dosage: 1 DF, BID, (SACUBITRIL 24 MG, VALSARTAN 26 MG)
     Route: 048
     Dates: start: 20180717

REACTIONS (1)
  - General physical health deterioration [Recovering/Resolving]
